FAERS Safety Report 7047727-3 (Version None)
Quarter: 2010Q4

REPORT INFORMATION
  Report Type: 
  Country: None (occurrence: None)
  Receive Date: 20101015
  Receipt Date: 20101005
  Transmission Date: 20110411
  Serious: Yes (Other)
  Sender: FDA-Public Use
  Company Number: US-JNJFOC-20101001787

PATIENT
  Sex: Female
  Weight: 70.76 kg

DRUGS (2)
  1. REMICADE [Suspect]
     Indication: RHEUMATOID ARTHRITIS
     Route: 042
  2. ZANTAC [Concomitant]
     Indication: DYSPEPSIA
     Route: 048

REACTIONS (3)
  - ARTHRALGIA [None]
  - BLOOD CHOLESTEROL INCREASED [None]
  - PYREXIA [None]
